FAERS Safety Report 5711429-3 (Version None)
Quarter: 2008Q2

REPORT INFORMATION
  Report Type: 
  Country: None (occurrence: None)
  Receive Date: 20080421
  Receipt Date: 20080408
  Transmission Date: 20081010
  Serious: Yes (Other)
  Sender: FDA-Public Use
  Company Number: CN-ROCHE-557678

PATIENT
  Age: 62 Year
  Sex: Female

DRUGS (2)
  1. PEG-INTERFERON A-2A (RO 25-8310) [Suspect]
     Route: 058
     Dates: start: 20071101, end: 20080201
  2. RIBAVIRIN [Concomitant]
     Route: 048
     Dates: start: 20071101, end: 20080201

REACTIONS (3)
  - NEUTROPHIL COUNT DECREASED [None]
  - PHLEBITIS [None]
  - RETINAL DETACHMENT [None]
